FAERS Safety Report 12751624 (Version 1)
Quarter: 2016Q3

REPORT INFORMATION
  Report Type: Spontaneous
  Country: US (occurrence: US)
  Receive Date: 20160916
  Receipt Date: 20160916
  Transmission Date: 20161109
  Serious: No
  Sender: FDA-Public Use
  Company Number: None

PATIENT
  Age: 62 Year
  Sex: Male
  Weight: 99.79 kg

DRUGS (7)
  1. MOBIC [Concomitant]
     Active Substance: MELOXICAM
  2. METFORMAN [Concomitant]
  3. CPAP W/OXYEGEN [Concomitant]
  4. ASPIRIN. [Concomitant]
     Active Substance: ASPIRIN
  5. ADVAIR DISKUS [Suspect]
     Active Substance: FLUTICASONE PROPIONATE\SALMETEROL XINAFOATE
     Indication: CHRONIC OBSTRUCTIVE PULMONARY DISEASE
     Dosage: 1 PUFF X2DAY TWICE DAILY MOUTH-INHALED
     Route: 055
     Dates: start: 2010
  6. OXYCONTON [Concomitant]
  7. SINGULAIR [Concomitant]
     Active Substance: MONTELUKAST SODIUM

REACTIONS (8)
  - Haemoptysis [None]
  - Respiratory tract inflammation [None]
  - Burn oral cavity [None]
  - Productive cough [None]
  - Incorrect dose administered by device [None]
  - Airway burns [None]
  - Activities of daily living impaired [None]
  - Accidental overdose [None]

NARRATIVE: CASE EVENT DATE: 20160809
